FAERS Safety Report 4464920-4 (Version None)
Quarter: 2004Q4

REPORT INFORMATION
  Report Type: 
  Country: None (occurrence: None)
  Receive Date: 20041004
  Receipt Date: 20040223
  Transmission Date: 20050328
  Serious: No
  Sender: FDA-Public Use
  Company Number: 361808

PATIENT
  Age: 72 Year
  Sex: Male

DRUGS (7)
  1. COREG [Suspect]
     Dosage: 3.125MG PER DAY
     Route: 048
  2. WARFARIN SODIUM [Concomitant]
  3. BUMEX [Concomitant]
  4. LISINOPRIL [Concomitant]
  5. CARDURA [Concomitant]
  6. TRAMADOL HCL [Concomitant]
     Route: 065
  7. POTASSIUM [Concomitant]

REACTIONS (3)
  - ALOPECIA [None]
  - BACK PAIN [None]
  - HYPERTRIGLYCERIDAEMIA [None]
